FAERS Safety Report 5935673-5 (Version None)
Quarter: 2008Q4

REPORT INFORMATION
  Report Type: 
  Country: None (occurrence: None)
  Receive Date: 20081028
  Receipt Date: 20081017
  Transmission Date: 20090506
  Serious: Yes (Other)
  Sender: FDA-Public Use
  Company Number: 2008AP002798

PATIENT
  Age: 43 Year
  Sex: Female
  Weight: 127.0072 kg

DRUGS (8)
  1. BALSALAZIDE DISODIUM [Suspect]
     Indication: CROHN'S DISEASE
     Dosage: 3 CAP; TID; PO, 1 CAP; TID; PO
     Route: 048
     Dates: start: 20080919
  2. BALSALAZIDE DISODIUM [Suspect]
     Indication: CROHN'S DISEASE
     Dosage: 3 CAP; TID; PO, 1 CAP; TID; PO
     Route: 048
     Dates: start: 20081001
  3. FLUOXETINE HYDROCHLORIDE [Concomitant]
  4. .. [Concomitant]
  5. DESLORATADINE [Concomitant]
  6. HYDROCHLOROTHIAZIDE [Concomitant]
  7. SALMETEROL [Concomitant]
  8. FLUTICASONE PROPIONATE [Concomitant]

REACTIONS (4)
  - ARTHRALGIA [None]
  - CONDITION AGGRAVATED [None]
  - CROHN'S DISEASE [None]
  - MOBILITY DECREASED [None]
